FAERS Safety Report 9443219 (Version 4)
Quarter: 2013Q4

REPORT INFORMATION
  Report Type: Spontaneous
  Country: US (occurrence: US)
  Receive Date: 20130806
  Receipt Date: 20131011
  Transmission Date: 20140711
  Serious: Yes (Hospitalization)
  Sender: FDA-Public Use
  Company Number: US-GLAXOSMITHKLINE-A0767707A

PATIENT
  Age: 67 Year
  Sex: Male
  Weight: 102.3 kg

DRUGS (1)
  1. AVANDIA [Suspect]
     Indication: DIABETES MELLITUS
     Dosage: 2MG PER DAY
     Route: 048
     Dates: start: 20070210, end: 20070809

REACTIONS (5)
  - Myocardial infarction [Unknown]
  - Angina pectoris [Unknown]
  - Coronary artery disease [Unknown]
  - Stent placement [Unknown]
  - Acute coronary syndrome [Unknown]
